FAERS Safety Report 20730809 (Version 2)
Quarter: 2024Q2

REPORT INFORMATION
  Report Type: Spontaneous
  Country: US (occurrence: US)
  Receive Date: 20220420
  Receipt Date: 20240415
  Transmission Date: 20240715
  Serious: Yes (Other)
  Sender: FDA-Public Use
  Company Number: US-ASTELLAS-2021US020012

PATIENT
  Age: 76 Year
  Sex: Female

DRUGS (4)
  1. LEXISCAN [Suspect]
     Active Substance: REGADENOSON
     Indication: Cardiac stress test
     Dosage: UNK, UNKNOWN FREQ (0.4 MG/5ML)
     Route: 065
     Dates: start: 20210524, end: 20210524
  2. LEXISCAN [Suspect]
     Active Substance: REGADENOSON
     Indication: Cardiac stress test
     Dosage: UNK, UNKNOWN FREQ (0.4 MG/5ML)
     Route: 065
     Dates: start: 20210524, end: 20210524
  3. LEXISCAN [Suspect]
     Active Substance: REGADENOSON
     Indication: Cardiac stress test
     Dosage: UNK, UNKNOWN FREQ (0.4 MG/5ML)
     Route: 065
     Dates: start: 20210524, end: 20210524
  4. LEXISCAN [Suspect]
     Active Substance: REGADENOSON
     Indication: Cardiac stress test
     Dosage: UNK, UNKNOWN FREQ (0.4 MG/5ML)
     Route: 065
     Dates: start: 20210524, end: 20210524

REACTIONS (2)
  - Bradycardia [Recovered/Resolved]
  - Asthenia [Recovered/Resolved]

NARRATIVE: CASE EVENT DATE: 20210524
